FAERS Safety Report 12762768 (Version 1)
Quarter: 2016Q3

REPORT INFORMATION
  Report Type: Spontaneous
  Country: GB (occurrence: GB)
  Receive Date: 20160920
  Receipt Date: 20160920
  Transmission Date: 20161109
  Serious: Yes (Hospitalization)
  Sender: FDA-Public Use
  Company Number: GB-TELIGENT, INC-IGIL20160267

PATIENT
  Age: 94 Year
  Sex: Male

DRUGS (1)
  1. CEFTAZIDIME. [Suspect]
     Active Substance: CEFTAZIDIME
     Indication: PRODUCT USED FOR UNKNOWN INDICATION
     Route: 042

REACTIONS (3)
  - Oedema peripheral [Unknown]
  - Rash generalised [Unknown]
  - Arthralgia [Unknown]

NARRATIVE: CASE EVENT DATE: 20160426
